FAERS Safety Report 25834787 (Version 1)
Quarter: 2025Q3

REPORT INFORMATION
  Report Type: Report from Study
  Country: US (occurrence: US)
  Receive Date: 20250923
  Receipt Date: 20250923
  Transmission Date: 20251020
  Serious: Yes (Hospitalization, Other)
  Sender: ALEXION PHARMACEUTICALS
  Company Number: 202508USA019900US

PATIENT
  Sex: Female

DRUGS (1)
  1. OLAPARIB [Suspect]
     Active Substance: OLAPARIB
     Indication: Ovarian cancer
     Dosage: 300 MILLIGRAM, BID
     Dates: start: 20250727

REACTIONS (8)
  - Intestinal perforation [Unknown]
  - Abdominal pain [Unknown]
  - Vomiting [Unknown]
  - Cough [Unknown]
  - Hernia [Unknown]
  - Headache [Unknown]
  - Fatigue [Unknown]
  - Photophobia [Unknown]
